FAERS Safety Report 24741564 (Version 1)
Quarter: 2024Q4

REPORT INFORMATION
  Report Type: Spontaneous
  Country: US (occurrence: US)
  Receive Date: 20241217
  Receipt Date: 20241217
  Transmission Date: 20250114
  Serious: No
  Sender: ALVOGEN
  Company Number: US-BMS-IMIDS-REMS_SI-11893454

PATIENT
  Sex: Male

DRUGS (1)
  1. LENALIDOMIDE [Suspect]
     Active Substance: LENALIDOMIDE
     Indication: Product used for unknown indication
     Dosage: 25 MG?21 DAYS ON AND 7 DAYS OFF

REACTIONS (2)
  - Product use issue [Unknown]
  - Product dose omission issue [Unknown]
